FAERS Safety Report 19230877 (Version 4)
Quarter: 2021Q4

REPORT INFORMATION
  Report Type: Report from Study
  Country: US (occurrence: US)
  Receive Date: 20210507
  Receipt Date: 20211213
  Transmission Date: 20220303
  Serious: Yes (Hospitalization, Other)
  Sender: FDA-Public Use
  Company Number: US-HORIZON THERAPEUTICS-HZN-2021-002097

PATIENT

DRUGS (1)
  1. TEPEZZA [Suspect]
     Active Substance: TEPROTUMUMAB-TRBW
     Indication: Endocrine ophthalmopathy
     Dosage: UNK
     Route: 065
     Dates: start: 20210105

REACTIONS (6)
  - Vomiting [Unknown]
  - Dizziness [Unknown]
  - Diabetes mellitus [Unknown]
  - Headache [Unknown]
  - Blood glucose increased [Unknown]
  - Eyelid ptosis [Not Recovered/Not Resolved]
